FAERS Safety Report 15377942 (Version 1)
Quarter: 2018Q3

REPORT INFORMATION
  Report Type: Report from Study
  Country: IN (occurrence: IN)
  Receive Date: 20180913
  Receipt Date: 20180913
  Transmission Date: 20181010
  Serious: Yes (Death)
  Sender: FDA-Public Use
  Company Number: IN-MYLANLABS-2018M1066983

PATIENT
  Age: 55 Year
  Sex: Male

DRUGS (7)
  1. VINCRISTINE [Suspect]
     Active Substance: VINCRISTINE
     Indication: BURKITT^S LEUKAEMIA
     Dosage: PART OF DA?EPOCH?R CHEMOTHERAPEUTIC REGIMEN; ADMINISTERED THROUGH A CENTRAL VENOUS CATHETER
     Route: 042
  2. CYCLOPHOSPHAMIDE. [Suspect]
     Active Substance: CYCLOPHOSPHAMIDE
     Indication: BURKITT^S LEUKAEMIA
     Dosage: PART OF DA?EPOCH?R CHEMOTHERAPEUTIC REGIMEN; ADMINISTERED THROUGH A CENTRAL VENOUS CATHETER
     Route: 042
  3. METHOTREXATE. [Concomitant]
     Active Substance: METHOTREXATE
     Indication: PROPHYLAXIS
     Dosage: ON DAY 4 OF EACH CYCLE
     Route: 037
  4. RITUXIMAB. [Suspect]
     Active Substance: RITUXIMAB
     Indication: BURKITT^S LEUKAEMIA
     Dosage: ON DAY 1; PART OF DA?EPOCH?R CHEMOTHERAPEUTIC REGIMEN; ADMINISTERED THROUGH A CENTRAL VENOUS CATH...
     Route: 042
  5. ETOPOSIDE. [Suspect]
     Active Substance: ETOPOSIDE
     Indication: BURKITT^S LEUKAEMIA
     Dosage: PART OF DA?EPOCH?R CHEMOTHERAPEUTIC REGIMEN; ADMINISTERED THROUGH A CENTRAL VENOUS CATHETER
     Route: 042
  6. PREDNISOLONE. [Suspect]
     Active Substance: PREDNISOLONE
     Indication: BURKITT^S LEUKAEMIA
     Dosage: PART OF DA?EPOCH?R CHEMOTHERAPEUTIC REGIMEN; ADMINISTERED THROUGH A CENTRAL VENOUS CATHETER
     Route: 042
  7. DOXORUBICIN [Suspect]
     Active Substance: DOXORUBICIN
     Indication: BURKITT^S LEUKAEMIA
     Dosage: PART OF DA?EPOCH?R CHEMOTHERAPEUTIC REGIMEN; ADMINISTERED THROUGH A CENTRAL VENOUS CATHETER
     Route: 042

REACTIONS (3)
  - Sepsis [Fatal]
  - Pneumonia [Fatal]
  - Respiratory failure [Fatal]
